FAERS Safety Report 13239966 (Version 1)
Quarter: 2017Q1

REPORT INFORMATION
  Report Type: Spontaneous
  Country: US (occurrence: US)
  Receive Date: 20170216
  Receipt Date: 20170216
  Transmission Date: 20170428
  Serious: No
  Sender: FDA-Public Use
  Company Number: US-PFIZER INC-2017070621

PATIENT
  Age: 52 Year
  Sex: Female

DRUGS (4)
  1. LYRICA [Suspect]
     Active Substance: PREGABALIN
     Indication: FIBROMYALGIA
     Dosage: 150 MG, THREE A DAY SOMETIMES FOUR
  2. LYRICA [Suspect]
     Active Substance: PREGABALIN
     Indication: CHEST INJURY
  3. LYRICA [Suspect]
     Active Substance: PREGABALIN
     Indication: ROAD TRAFFIC ACCIDENT
  4. LYRICA [Suspect]
     Active Substance: PREGABALIN
     Indication: SPINAL OPERATION

REACTIONS (2)
  - Pain [Unknown]
  - Malaise [Unknown]
